FAERS Safety Report 23863552 (Version 1)
Quarter: 2024Q2

REPORT INFORMATION
  Report Type: Spontaneous
  Country: US (occurrence: None)
  Receive Date: 20240515
  Receipt Date: 20240515
  Transmission Date: 20240716
  Serious: No
  Sender: FDA-Public Use
  Company Number: None

PATIENT
  Sex: Female

DRUGS (2)
  1. ARIPIPRAZOLE [Suspect]
     Active Substance: ARIPIPRAZOLE
  2. LITHIUM [Suspect]
     Active Substance: LITHIUM

REACTIONS (6)
  - Cardiac disorder [None]
  - Withdrawal syndrome [None]
  - Constipation [None]
  - Tremor [None]
  - COVID-19 [None]
  - Immune system disorder [None]
